FAERS Safety Report 11479235 (Version 1)
Quarter: 2015Q3

REPORT INFORMATION
  Report Type: Spontaneous
  Country: US (occurrence: US)
  Receive Date: 20150909
  Receipt Date: 20150909
  Transmission Date: 20151125
  Serious: No
  Sender: FDA-Public Use
  Company Number: US-JAZZ-2014-US-013221

PATIENT
  Age: 24 Year
  Sex: Male
  Weight: 81.18 kg

DRUGS (5)
  1. CELEBREX [Concomitant]
     Active Substance: CELECOXIB
     Indication: MUSCLE STRAIN
     Dosage: UNK
     Route: 048
  2. ALBUTEROL. [Concomitant]
     Active Substance: ALBUTEROL
     Indication: ASTHMA
     Dosage: UNK
     Route: 048
  3. XYREM [Suspect]
     Active Substance: SODIUM OXYBATE
     Indication: NARCOLEPSY
     Dosage: 2.25 G, BID
     Route: 048
     Dates: start: 201408, end: 2014
  4. PROVIGIL [Concomitant]
     Active Substance: MODAFINIL
     Indication: NARCOLEPSY
     Dosage: UNK
     Route: 048
  5. XYREM [Suspect]
     Active Substance: SODIUM OXYBATE
     Dosage: 3 G, BID
     Route: 048
     Dates: start: 2014, end: 2014

REACTIONS (9)
  - Initial insomnia [Recovered/Resolved]
  - Joint injury [Unknown]
  - Headache [Recovering/Resolving]
  - Somnolence [Recovered/Resolved]
  - Musculoskeletal pain [Not Recovered/Not Resolved]
  - Neuralgia [Recovered/Resolved]
  - Muscle twitching [Not Recovered/Not Resolved]
  - Tendonitis [Unknown]
  - Sciatica [Unknown]

NARRATIVE: CASE EVENT DATE: 2014
